FAERS Safety Report 9281446 (Version 1)
Quarter: 2013Q2

REPORT INFORMATION
  Report Type: Spontaneous
  Country: US (occurrence: US)
  Receive Date: 20130509
  Receipt Date: 20130509
  Transmission Date: 20140414
  Serious: Yes (Other)
  Sender: FDA-Public Use
  Company Number: US-VERTEX PHARMACEUTICALS INC-2013-005850

PATIENT
  Age: 63 Year
  Sex: Female
  Weight: 84 kg

DRUGS (3)
  1. INCIVEK [Suspect]
     Indication: HEPATITIS C
     Dosage: 750 MG, TID
     Route: 048
     Dates: start: 201206, end: 201209
  2. RIBAVIRIN [Suspect]
     Dosage: 2 DF, BID
     Route: 048
     Dates: start: 201206, end: 201211
  3. PEGINTRON [Suspect]
     Dosage: UNK
     Dates: start: 201206, end: 201211

REACTIONS (1)
  - Transplant rejection [Not Recovered/Not Resolved]
